FAERS Safety Report 5079472-8 (Version None)
Quarter: 2006Q3

REPORT INFORMATION
  Report Type: 
  Country: None (occurrence: None)
  Receive Date: 20060811
  Receipt Date: 20060811
  Transmission Date: 20061208
  Serious: Yes (Other)
  Sender: FDA-Public Use
  Company Number: None

PATIENT
  Age: 47 Year
  Sex: Female

DRUGS (1)
  1. DURAGESIC-100 [Suspect]
     Indication: BACK PAIN
     Dosage: 1 PATCH Q72 HOURS TRANSDERMAL
     Route: 062
     Dates: start: 20060805, end: 20060810

REACTIONS (7)
  - DRY THROAT [None]
  - MOBILITY DECREASED [None]
  - PHARMACEUTICAL PRODUCT COMPLAINT [None]
  - POOR QUALITY DRUG ADMINISTERED [None]
  - SEDATION [None]
  - SOMNOLENCE [None]
  - URINARY INCONTINENCE [None]
